FAERS Safety Report 4860889-9 (Version None)
Quarter: 2005Q4

REPORT INFORMATION
  Report Type: 
  Country: None (occurrence: None)
  Receive Date: 20051216
  Receipt Date: 20051206
  Transmission Date: 20060501
  Serious: Yes (Death, Life-Threatening, Other)
  Sender: FDA-Public Use
  Company Number: 2005044811

PATIENT
  Age: 2 Day
  Sex: Male
  Weight: 3.8 kg

DRUGS (3)
  1. FOSPHENYTOIN SODIUM [Suspect]
     Indication: CONVULSION
     Dosage: 480 MG (30MG IN 5 MINUTES THEN 450MG IN 5 HOURS), INTRAVENOUS
     Route: 042
     Dates: start: 20041225, end: 20041225
  2. PHENOBARBITAL TAB [Suspect]
     Indication: CONVULSION
     Dates: start: 20041225, end: 20041225
  3. PYRIDOXINE HCL [Suspect]
     Indication: CONVULSION
     Dates: start: 20041225, end: 20041225

REACTIONS (17)
  - ACCIDENTAL OVERDOSE [None]
  - ANOXIA [None]
  - ASPIRATION [None]
  - BRADYCARDIA NEONATAL [None]
  - CARDIAC ARREST [None]
  - CARDIAC DISORDER [None]
  - CONDITION AGGRAVATED [None]
  - CONVULSION NEONATAL [None]
  - HYPERAEMIA [None]
  - INCORRECT DOSE ADMINISTERED [None]
  - LIVER DISORDER [None]
  - NEONATAL ASPIRATION [None]
  - NEPHROSCLEROSIS [None]
  - PLEURAL EFFUSION [None]
  - RENAL DISORDER [None]
  - RENAL TUBULAR NECROSIS [None]
  - RESPIRATORY ARREST [None]
